FAERS Safety Report 10648407 (Version 1)
Quarter: 2014Q4

REPORT INFORMATION
  Report Type: Spontaneous
  Country: US (occurrence: None)
  Receive Date: 20141210
  Receipt Date: 20141210
  Transmission Date: 20150529
  Serious: Yes (Other)
  Sender: FDA-Public Use
  Company Number: 2014MB000010

PATIENT
  Age: 45 Year
  Sex: Female

DRUGS (1)
  1. MITOSOL [Suspect]
     Active Substance: ISOPROPYL ALCOHOL\MITOMYCIN
     Indication: CONJUNCTIVAL HYPERAEMIA

REACTIONS (4)
  - Postoperative heterotopic calcification [None]
  - Moraxella test positive [None]
  - Infective episcleritis [None]
  - Scleral thinning [None]
